FAERS Safety Report 8009846-4 (Version None)
Quarter: 2011Q4

REPORT INFORMATION
  Report Type: 
  Country: None (occurrence: None)
  Receive Date: 20111228
  Receipt Date: 20111222
  Transmission Date: 20120403
  Serious: No
  Sender: FDA-Public Use
  Company Number: US-BAYER-2011-123519

PATIENT
  Age: 45 Year
  Sex: Female

DRUGS (2)
  1. MIRENA [Suspect]
     Indication: CONTRACEPTION
     Dosage: 20 MCG/24HR, CONT
     Route: 015
     Dates: start: 20111220
  2. MIRENA [Suspect]
     Dosage: UNK
     Dates: start: 20070201, end: 20111220

REACTIONS (3)
  - HORMONE LEVEL ABNORMAL [None]
  - EMOTIONAL DISORDER [None]
  - DEPRESSION [None]
